FAERS Safety Report 9513438 (Version 1)
Quarter: 2013Q3

REPORT INFORMATION
  Report Type: Spontaneous
  Country: US (occurrence: US)
  Receive Date: 20130910
  Receipt Date: 20130910
  Transmission Date: 20140515
  Serious: No
  Sender: FDA-Public Use
  Company Number: US-TARO-2012P1065067

PATIENT
  Age: 57 Year
  Sex: Male
  Weight: 86.18 kg

DRUGS (6)
  1. WARFARIN SODIUM TABLETS USP 5MG [Suspect]
     Indication: CEREBROVASCULAR ACCIDENT
     Route: 048
     Dates: start: 201205
  2. WARFARIN SODIUM TABLETS USP 5MG [Suspect]
     Route: 048
     Dates: start: 201205
  3. WARFARIN TABLETS (BARR) [Suspect]
     Indication: CEREBROVASCULAR ACCIDENT
     Dates: start: 1995, end: 201205
  4. WARFARIN TABLETS (BARR) [Suspect]
     Dates: start: 1995, end: 201205
  5. WARFARIN TABLETS (BARR) [Suspect]
     Indication: CEREBROVASCULAR ACCIDENT
     Dates: start: 2012
  6. WARFARIN TABLETS (BARR) [Suspect]
     Dates: start: 2012

REACTIONS (3)
  - Rash [Not Recovered/Not Resolved]
  - Pruritus [Not Recovered/Not Resolved]
  - Hypersensitivity [Not Recovered/Not Resolved]
